FAERS Safety Report 9144655 (Version 3)
Quarter: 2013Q2

REPORT INFORMATION
  Report Type: Spontaneous
  Country: US (occurrence: US)
  Receive Date: 20130306
  Receipt Date: 20130424
  Transmission Date: 20140414
  Serious: Yes (Death, Hospitalization)
  Sender: FDA-Public Use
  Company Number: US-GILEAD-2013-0071034

PATIENT
  Age: 64 Year
  Sex: Female

DRUGS (11)
  1. LETAIRIS [Suspect]
     Indication: PULMONARY ARTERIAL HYPERTENSION
     Dosage: 10 MG, UNK
     Route: 048
     Dates: start: 200802, end: 201302
  2. LETAIRIS [Suspect]
     Indication: PULMONARY ARTERIAL HYPERTENSION
  3. GABAPENTIN [Concomitant]
  4. DIGOXIN [Concomitant]
  5. LASIX                              /00032601/ [Concomitant]
     Dosage: UNK
  6. CITALOPRAM [Concomitant]
  7. MORPHINE [Concomitant]
  8. ADCIRCA [Concomitant]
  9. COMBIVENT [Concomitant]
  10. OXYGEN [Concomitant]
  11. AMPYRA [Concomitant]
     Dosage: UNK
     Dates: end: 20130213

REACTIONS (3)
  - Respiratory failure [Fatal]
  - Oxygen saturation decreased [Unknown]
  - Dyspnoea [Unknown]
